FAERS Safety Report 13673727 (Version 1)
Quarter: 2017Q2

REPORT INFORMATION
  Report Type: Spontaneous
  Country: US (occurrence: US)
  Receive Date: 20170621
  Receipt Date: 20170621
  Transmission Date: 20170830
  Serious: No
  Sender: FDA-Public Use
  Company Number: US-GLAXOSMITHKLINE-US2017091923

PATIENT
  Age: 69 Year
  Sex: Female

DRUGS (2)
  1. NICODERM CQ [Suspect]
     Active Substance: NICOTINE
     Dosage: UNK
     Dates: start: 20170608, end: 20170608
  2. NICODERM CQ [Suspect]
     Active Substance: NICOTINE
     Indication: SMOKING CESSATION THERAPY
     Dosage: 4 MG, UNK
     Dates: start: 2016

REACTIONS (3)
  - Application site rash [Recovering/Resolving]
  - Application site pruritus [Recovering/Resolving]
  - Rash papular [Recovering/Resolving]

NARRATIVE: CASE EVENT DATE: 20170608
